FAERS Safety Report 7676197-7 (Version None)
Quarter: 2011Q3

REPORT INFORMATION
  Report Type: 
  Country: None (occurrence: None)
  Receive Date: 20110811
  Receipt Date: 20110802
  Transmission Date: 20111222
  Serious: Yes (Other)
  Sender: FDA-Public Use
  Company Number: JP-ELI_LILLY_AND_COMPANY-JP201106003146

PATIENT
  Age: 43 Year
  Sex: Male

DRUGS (3)
  1. BYETTA [Suspect]
     Indication: DIABETES MELLITUS
     Dosage: 5 UG, BID
     Route: 058
     Dates: start: 20110516, end: 20110604
  2. AMARYL [Concomitant]
     Indication: DIABETES MELLITUS
     Dosage: 0.5 G, QD
     Route: 048
     Dates: start: 20080314
  3. METFORMIN HCL [Concomitant]
     Indication: DIABETES MELLITUS
     Dosage: 1000 G, QD
     Route: 048
     Dates: start: 20110426, end: 20110604

REACTIONS (1)
  - HEPATITIS B [None]
